FAERS Safety Report 12116509 (Version 2)
Quarter: 2016Q1

REPORT INFORMATION
  Report Type: Spontaneous
  Country: PH (occurrence: PH)
  Receive Date: 20160225
  Receipt Date: 20160314
  Transmission Date: 20160526
  Serious: Yes (Death)
  Sender: FDA-Public Use
  Company Number: PH-B.I. PHARMACEUTICALS,INC./RIDGEFIELD-2016-BI-11574RP

PATIENT
  Sex: Male

DRUGS (2)
  1. COMBIVENT [Suspect]
     Active Substance: ALBUTEROL SULFATE\IPRATROPIUM BROMIDE
     Indication: BRONCHIAL DISORDER
     Dosage: DOSE PER APPLICATION: 500/2.5 MG; DAILY DOSE: 1000/5 MG
     Route: 055
     Dates: start: 20140711
  2. MUCOSOLVAN [Suspect]
     Active Substance: AMBROXOL HYDROCHLORIDE
     Indication: PRODUCT USED FOR UNKNOWN INDICATION
     Dosage: DOSE PER APPLICATION: 15/2 MG
     Route: 055
     Dates: start: 20140711

REACTIONS (2)
  - Oral candidiasis [Fatal]
  - Stomatitis [Fatal]

NARRATIVE: CASE EVENT DATE: 20140717
